FAERS Safety Report 25189531 (Version 1)
Quarter: 2025Q2

REPORT INFORMATION
  Report Type: Spontaneous
  Country: GB (occurrence: GB)
  Receive Date: 20250411
  Receipt Date: 20250411
  Transmission Date: 20250717
  Serious: Yes (Other)
  Sender: MYLAN
  Company Number: GB-MHRA-TPP29243468C21262814YC1743766203566

PATIENT
  Age: 60 Year
  Sex: Male
  Weight: 100 kg

DRUGS (60)
  1. DOXAZOSIN [Suspect]
     Active Substance: DOXAZOSIN MESYLATE
     Indication: Ill-defined disorder
     Dosage: 4 MILLIGRAM QD (TAKE DAILY)
     Dates: start: 20250203
  2. DOXAZOSIN [Suspect]
     Active Substance: DOXAZOSIN MESYLATE
     Dosage: 4 MILLIGRAM QD (TAKE DAILY)
     Route: 065
     Dates: start: 20250203
  3. DOXAZOSIN [Suspect]
     Active Substance: DOXAZOSIN MESYLATE
     Dosage: 4 MILLIGRAM QD (TAKE DAILY)
     Route: 065
     Dates: start: 20250203
  4. DOXAZOSIN [Suspect]
     Active Substance: DOXAZOSIN MESYLATE
     Dosage: 4 MILLIGRAM QD (TAKE DAILY)
     Dates: start: 20250203
  5. LOSARTAN [Concomitant]
     Active Substance: LOSARTAN
     Indication: Ill-defined disorder
     Dosage: 1 DOSAGE FORM, QD (ONCE DAILY)
     Dates: start: 20250319
  6. LOSARTAN [Concomitant]
     Active Substance: LOSARTAN
     Dosage: 1 DOSAGE FORM, QD (ONCE DAILY)
     Route: 065
     Dates: start: 20250319
  7. LOSARTAN [Concomitant]
     Active Substance: LOSARTAN
     Dosage: 1 DOSAGE FORM, QD (ONCE DAILY)
     Route: 065
     Dates: start: 20250319
  8. LOSARTAN [Concomitant]
     Active Substance: LOSARTAN
     Dosage: 1 DOSAGE FORM, QD (ONCE DAILY)
     Dates: start: 20250319
  9. ASPIRIN [Concomitant]
     Active Substance: ASPIRIN
     Indication: Ill-defined disorder
     Dosage: 1 DOSAGE FORM, QD (ONCE DAILY)
     Dates: start: 20241001
  10. ASPIRIN [Concomitant]
     Active Substance: ASPIRIN
     Dosage: 1 DOSAGE FORM, QD (ONCE DAILY)
     Route: 065
     Dates: start: 20241001
  11. ASPIRIN [Concomitant]
     Active Substance: ASPIRIN
     Dosage: 1 DOSAGE FORM, QD (ONCE DAILY)
     Route: 065
     Dates: start: 20241001
  12. ASPIRIN [Concomitant]
     Active Substance: ASPIRIN
     Dosage: 1 DOSAGE FORM, QD (ONCE DAILY)
     Dates: start: 20241001
  13. ATORVASTATIN [Concomitant]
     Active Substance: ATORVASTATIN
     Indication: Ill-defined disorder
     Dosage: 1 DOSAGE FORM, QD (ONCE DAILY)
     Dates: start: 20241001
  14. ATORVASTATIN [Concomitant]
     Active Substance: ATORVASTATIN
     Dosage: 1 DOSAGE FORM, QD (ONCE DAILY)
     Route: 065
     Dates: start: 20241001
  15. ATORVASTATIN [Concomitant]
     Active Substance: ATORVASTATIN
     Dosage: 1 DOSAGE FORM, QD (ONCE DAILY)
     Route: 065
     Dates: start: 20241001
  16. ATORVASTATIN [Concomitant]
     Active Substance: ATORVASTATIN
     Dosage: 1 DOSAGE FORM, QD (ONCE DAILY)
     Dates: start: 20241001
  17. FENOFIBRATE [Concomitant]
     Active Substance: FENOFIBRATE
     Indication: Ill-defined disorder
     Dosage: 1 DOSAGE FORM, QD (ONCE DAILY)
     Dates: start: 20241001
  18. FENOFIBRATE [Concomitant]
     Active Substance: FENOFIBRATE
     Dosage: 1 DOSAGE FORM, QD (ONCE DAILY)
     Route: 065
     Dates: start: 20241001
  19. FENOFIBRATE [Concomitant]
     Active Substance: FENOFIBRATE
     Dosage: 1 DOSAGE FORM, QD (ONCE DAILY)
     Route: 065
     Dates: start: 20241001
  20. FENOFIBRATE [Concomitant]
     Active Substance: FENOFIBRATE
     Dosage: 1 DOSAGE FORM, QD (ONCE DAILY)
     Dates: start: 20241001
  21. HUMALOG [Concomitant]
     Active Substance: INSULIN LISPRO
     Indication: Ill-defined disorder
  22. HUMALOG [Concomitant]
     Active Substance: INSULIN LISPRO
     Route: 065
  23. HUMALOG [Concomitant]
     Active Substance: INSULIN LISPRO
     Route: 065
  24. HUMALOG [Concomitant]
     Active Substance: INSULIN LISPRO
  25. LANSOPRAZOLE [Concomitant]
     Active Substance: LANSOPRAZOLE
     Indication: Ill-defined disorder
     Dosage: 1 DOSAGE FORM, AM (TAKE ONE IN MORNING 30 TO 60 MINS BEFORE FOOD)
     Dates: start: 20241001
  26. LANSOPRAZOLE [Concomitant]
     Active Substance: LANSOPRAZOLE
     Dosage: 1 DOSAGE FORM, AM (TAKE ONE IN MORNING 30 TO 60 MINS BEFORE FOOD)
     Route: 065
     Dates: start: 20241001
  27. LANSOPRAZOLE [Concomitant]
     Active Substance: LANSOPRAZOLE
     Dosage: 1 DOSAGE FORM, AM (TAKE ONE IN MORNING 30 TO 60 MINS BEFORE FOOD)
     Route: 065
     Dates: start: 20241001
  28. LANSOPRAZOLE [Concomitant]
     Active Substance: LANSOPRAZOLE
     Dosage: 1 DOSAGE FORM, AM (TAKE ONE IN MORNING 30 TO 60 MINS BEFORE FOOD)
     Dates: start: 20241001
  29. LISINOPRIL [Concomitant]
     Active Substance: LISINOPRIL
     Indication: Ill-defined disorder
     Dosage: 1 DOSAGE FORM, QD (ONCE DAILY)
     Dates: start: 20241001, end: 20250113
  30. LISINOPRIL [Concomitant]
     Active Substance: LISINOPRIL
     Dosage: 1 DOSAGE FORM, QD (ONCE DAILY)
     Route: 065
     Dates: start: 20241001, end: 20250113
  31. LISINOPRIL [Concomitant]
     Active Substance: LISINOPRIL
     Dosage: 1 DOSAGE FORM, QD (ONCE DAILY)
     Route: 065
     Dates: start: 20241001, end: 20250113
  32. LISINOPRIL [Concomitant]
     Active Substance: LISINOPRIL
     Dosage: 1 DOSAGE FORM, QD (ONCE DAILY)
     Dates: start: 20241001, end: 20250113
  33. METFORMIN [Concomitant]
     Active Substance: METFORMIN HYDROCHLORIDE
     Indication: Ill-defined disorder
     Dosage: 1 DOSAGE FORM, BID (TWICE A DAY)
     Dates: start: 20241001
  34. METFORMIN [Concomitant]
     Active Substance: METFORMIN HYDROCHLORIDE
     Dosage: 1 DOSAGE FORM, BID (TWICE A DAY)
     Route: 065
     Dates: start: 20241001
  35. METFORMIN [Concomitant]
     Active Substance: METFORMIN HYDROCHLORIDE
     Dosage: 1 DOSAGE FORM, BID (TWICE A DAY)
     Route: 065
     Dates: start: 20241001
  36. METFORMIN [Concomitant]
     Active Substance: METFORMIN HYDROCHLORIDE
     Dosage: 1 DOSAGE FORM, BID (TWICE A DAY)
     Dates: start: 20241001
  37. ALBUTEROL [Concomitant]
     Active Substance: ALBUTEROL
     Indication: Ill-defined disorder
     Dosage: UNK, QID (1 TO 2 PUFFS UP TO FOUR TIMES DAILY AS REQUIRED)
     Dates: start: 20241001
  38. ALBUTEROL [Concomitant]
     Active Substance: ALBUTEROL
     Dosage: UNK, QID (1 TO 2 PUFFS UP TO FOUR TIMES DAILY AS REQUIRED)
     Route: 065
     Dates: start: 20241001
  39. ALBUTEROL [Concomitant]
     Active Substance: ALBUTEROL
     Dosage: UNK, QID (1 TO 2 PUFFS UP TO FOUR TIMES DAILY AS REQUIRED)
     Route: 065
     Dates: start: 20241001
  40. ALBUTEROL [Concomitant]
     Active Substance: ALBUTEROL
     Dosage: UNK, QID (1 TO 2 PUFFS UP TO FOUR TIMES DAILY AS REQUIRED)
     Dates: start: 20241001
  41. SERTRALINE [Concomitant]
     Active Substance: SERTRALINE HYDROCHLORIDE
     Indication: Ill-defined disorder
     Dosage: 1 DOSAGE FORM, QD (ONCE DAILY)
     Dates: start: 20241001
  42. SERTRALINE [Concomitant]
     Active Substance: SERTRALINE HYDROCHLORIDE
     Dosage: 1 DOSAGE FORM, QD (ONCE DAILY)
     Route: 065
     Dates: start: 20241001
  43. SERTRALINE [Concomitant]
     Active Substance: SERTRALINE HYDROCHLORIDE
     Dosage: 1 DOSAGE FORM, QD (ONCE DAILY)
     Route: 065
     Dates: start: 20241001
  44. SERTRALINE [Concomitant]
     Active Substance: SERTRALINE HYDROCHLORIDE
     Dosage: 1 DOSAGE FORM, QD (ONCE DAILY)
     Dates: start: 20241001
  45. TADALAFIL [Concomitant]
     Active Substance: TADALAFIL
     Indication: Ill-defined disorder
     Dosage: UNK UNK, QD (EVERY DAY SLS)
     Dates: start: 20241001
  46. TADALAFIL [Concomitant]
     Active Substance: TADALAFIL
     Dosage: UNK UNK, QD (EVERY DAY SLS)
     Route: 065
     Dates: start: 20241001
  47. TADALAFIL [Concomitant]
     Active Substance: TADALAFIL
     Dosage: UNK UNK, QD (EVERY DAY SLS)
     Route: 065
     Dates: start: 20241001
  48. TADALAFIL [Concomitant]
     Active Substance: TADALAFIL
     Dosage: UNK UNK, QD (EVERY DAY SLS)
     Dates: start: 20241001
  49. TRESIBA [Concomitant]
     Active Substance: INSULIN DEGLUDEC
     Indication: Ill-defined disorder
  50. TRESIBA [Concomitant]
     Active Substance: INSULIN DEGLUDEC
     Route: 065
  51. TRESIBA [Concomitant]
     Active Substance: INSULIN DEGLUDEC
     Route: 065
  52. TRESIBA [Concomitant]
     Active Substance: INSULIN DEGLUDEC
  53. TRULICITY [Concomitant]
     Active Substance: DULAGLUTIDE
     Indication: Ill-defined disorder
  54. TRULICITY [Concomitant]
     Active Substance: DULAGLUTIDE
     Route: 065
  55. TRULICITY [Concomitant]
     Active Substance: DULAGLUTIDE
     Route: 065
  56. TRULICITY [Concomitant]
     Active Substance: DULAGLUTIDE
  57. AMLODIPINE [Concomitant]
     Active Substance: AMLODIPINE BESYLATE
     Indication: Ill-defined disorder
     Dosage: 1 DOSAGE FORM, QD (ONCE DAILY)
     Dates: start: 20250113, end: 20250203
  58. AMLODIPINE [Concomitant]
     Active Substance: AMLODIPINE BESYLATE
     Dosage: 1 DOSAGE FORM, QD (ONCE DAILY)
     Route: 065
     Dates: start: 20250113, end: 20250203
  59. AMLODIPINE [Concomitant]
     Active Substance: AMLODIPINE BESYLATE
     Dosage: 1 DOSAGE FORM, QD (ONCE DAILY)
     Route: 065
     Dates: start: 20250113, end: 20250203
  60. AMLODIPINE [Concomitant]
     Active Substance: AMLODIPINE BESYLATE
     Dosage: 1 DOSAGE FORM, QD (ONCE DAILY)
     Dates: start: 20250113, end: 20250203

REACTIONS (3)
  - Myalgia [Recovered/Resolved]
  - Headache [Unknown]
  - Mouth ulceration [Recovered/Resolved]
